FAERS Safety Report 9410641 (Version 3)
Quarter: 2013Q3

REPORT INFORMATION
  Report Type: Spontaneous
  Country: US (occurrence: US)
  Receive Date: 20130719
  Receipt Date: 20130904
  Transmission Date: 20140515
  Serious: Yes (Other)
  Sender: FDA-Public Use
  Company Number: US-PERRIGO-13US007262

PATIENT
  Age: 15 Year
  Sex: Female
  Weight: 55.78 kg

DRUGS (3)
  1. MUPIROCIN 2% RX 1N2 [Suspect]
     Indication: CELLULITIS
     Dosage: UNKNOWN AMOUNT, ONCE
     Route: 061
     Dates: start: 20130703, end: 20130703
  2. CEPHALEXIN [Concomitant]
     Indication: CELLULITIS
     Dosage: 500 MG, QID X10 DAYS
     Route: 048
     Dates: start: 20130626, end: 20130703
  3. SULFAMETHOXAZOLE W/TRIMETHOPRIM [Concomitant]
     Indication: CELLULITIS
     Dosage: 2 TABLETS, BID
     Route: 048
     Dates: start: 20130626, end: 20130703

REACTIONS (7)
  - Rash generalised [Recovered/Resolved]
  - Swelling face [None]
  - Eye swelling [Recovered/Resolved]
  - Lip swelling [Recovered/Resolved]
  - Rash macular [Recovered/Resolved]
  - Pyrexia [Unknown]
  - Erythema [Recovered/Resolved]
